FAERS Safety Report 19289829 (Version 1)
Quarter: 2021Q2

REPORT INFORMATION
  Report Type: Spontaneous
  Country: US (occurrence: US)
  Receive Date: 20210521
  Receipt Date: 20210521
  Transmission Date: 20210717
  Serious: No
  Sender: FDA-Public Use
  Company Number: US-RADIUS HEALTH INC.-2020US004468

PATIENT
  Sex: Female

DRUGS (1)
  1. TYMLOS [Suspect]
     Active Substance: ABALOPARATIDE
     Indication: PRODUCT USED FOR UNKNOWN INDICATION
     Dosage: 80MCG
     Route: 058
     Dates: end: 202012

REACTIONS (8)
  - Nausea [Unknown]
  - Urinary tract disorder [Unknown]
  - Headache [Not Recovered/Not Resolved]
  - Gastrointestinal disorder [Unknown]
  - Migraine [Not Recovered/Not Resolved]
  - Abdominal pain upper [Unknown]
  - Fatigue [Not Recovered/Not Resolved]
  - Product quality issue [Unknown]
